FAERS Safety Report 24986453 (Version 1)
Quarter: 2025Q1

REPORT INFORMATION
  Report Type: Spontaneous
  Country: US (occurrence: US)
  Receive Date: 20250219
  Receipt Date: 20250219
  Transmission Date: 20250409
  Serious: No
  Sender: GLAXOSMITHKLINE
  Company Number: US-GSK-US2025015177

PATIENT
  Sex: Male

DRUGS (6)
  1. LAMICTAL [Suspect]
     Active Substance: LAMOTRIGINE
     Indication: Antidepressant therapy
  2. FETZIMA [Concomitant]
     Active Substance: LEVOMILNACIPRAN HYDROCHLORIDE
     Indication: Antidepressant therapy
  3. BUPROPION [Concomitant]
     Active Substance: BUPROPION
     Indication: Antidepressant therapy
  4. KLONOPIN [Concomitant]
     Active Substance: CLONAZEPAM
     Indication: Antipsychotic therapy
  5. PROPRANOLOL [Concomitant]
     Active Substance: PROPRANOLOL HYDROCHLORIDE
     Indication: Product used for unknown indication
  6. TAMSULOSIN [Concomitant]
     Active Substance: TAMSULOSIN
     Indication: Product used for unknown indication

REACTIONS (8)
  - Illness [Not Recovered/Not Resolved]
  - Influenza like illness [Unknown]
  - Nausea [Unknown]
  - Dizziness [Unknown]
  - Bowel movement irregularity [Unknown]
  - Photopsia [Unknown]
  - Pyrexia [Unknown]
  - Blood pressure increased [Unknown]
